FAERS Safety Report 20722439 (Version 2)
Quarter: 2022Q2

REPORT INFORMATION
  Report Type: Spontaneous
  Country: US (occurrence: US)
  Receive Date: 20220418
  Receipt Date: 20220513
  Transmission Date: 20220720
  Serious: Yes (Other)
  Sender: FDA-Public Use
  Company Number: US-ALLERGAN-2212833US

PATIENT
  Sex: Female

DRUGS (2)
  1. COMBIGAN [Suspect]
     Active Substance: BRIMONIDINE TARTRATE\TIMOLOL MALEATE
     Indication: Glaucoma
     Dosage: 2 GTT, BID
     Route: 061
     Dates: start: 2013
  2. LATANOPROST [Concomitant]
     Active Substance: LATANOPROST
     Indication: Glaucoma
     Dosage: 2 GTT, QD
     Dates: start: 20120330

REACTIONS (2)
  - Cataract [Recovering/Resolving]
  - Visual acuity reduced [Unknown]

NARRATIVE: CASE EVENT DATE: 20190101
